FAERS Safety Report 4558291-2 (Version None)
Quarter: 2005Q1

REPORT INFORMATION
  Report Type: 
  Country: None (occurrence: None)
  Receive Date: 20050103
  Receipt Date: 20041102
  Transmission Date: 20050727
  Serious: Yes (Other)
  Sender: FDA-Public Use
  Company Number: 2004UW22629

PATIENT
  Age: 71 Year
  Sex: Female
  Weight: 86.182 kg

DRUGS (5)
  1. CRESTOR [Suspect]
     Indication: HYPERCHOLESTEROLAEMIA
     Dosage: 10 MG PO
     Route: 048
     Dates: end: 20040801
  2. LEXAPRO [Concomitant]
  3. ANTIBIOTICS [Concomitant]
  4. ASPIRIN [Concomitant]
  5. IBUPROFEN [Concomitant]

REACTIONS (5)
  - BLOOD CHLORIDE INCREASED [None]
  - BLOOD CHOLESTEROL DECREASED [None]
  - BLOOD GLUCOSE INCREASED [None]
  - LOW DENSITY LIPOPROTEIN DECREASED [None]
  - MYALGIA [None]
